FAERS Safety Report 5605688-5 (Version None)
Quarter: 2008Q1

REPORT INFORMATION
  Report Type: 
  Country: None (occurrence: None)
  Receive Date: 20080129
  Receipt Date: 20080118
  Transmission Date: 20080703
  Serious: Yes (Hospitalization, Other)
  Sender: FDA-Public Use
  Company Number: FR-WYE-G00911908

PATIENT
  Sex: Female

DRUGS (8)
  1. ADVIL LIQUI-GELS [Suspect]
     Indication: TENDONITIS
     Route: 048
     Dates: start: 20071023, end: 20071031
  2. NOCTRAN 10 [Concomitant]
     Dosage: 1.5 TABLET PER DAY
     Route: 048
  3. IBUPROFEN [Suspect]
     Dosage: UNKNOWN
     Route: 048
     Dates: start: 20070101, end: 20070101
  4. LEVOTHYROX [Concomitant]
     Dosage: 50 MG PER DAY
     Route: 048
  5. MEDIATOR [Concomitant]
     Dosage: 2 TABLETS PER DAY
     Route: 048
  6. IXEL [Concomitant]
     Dosage: ONE TABLET PER DAY
     Route: 048
  7. TRANXENE [Concomitant]
     Dosage: 2 TABLETS PER DAY
     Route: 048
  8. CARBAMAZEPINE [Concomitant]
     Dosage: 400 MG PER DAY
     Route: 048

REACTIONS (4)
  - MALAISE [None]
  - OVERDOSE [None]
  - PROCTOCOLITIS [None]
  - SYNCOPE VASOVAGAL [None]
